FAERS Safety Report 24992574 (Version 1)
Quarter: 2025Q1

REPORT INFORMATION
  Report Type: Spontaneous
  Country: GB (occurrence: GB)
  Receive Date: 20250221
  Receipt Date: 20250221
  Transmission Date: 20250409
  Serious: Yes (Other)
  Sender: EMD SERONO INC
  Company Number: GB-Merck Healthcare KGaA-2025008005

PATIENT
  Age: 77 Year
  Sex: Female

DRUGS (1)
  1. TEPMETKO [Suspect]
     Active Substance: TEPOTINIB HYDROCHLORIDE
     Indication: Lung adenocarcinoma
     Dates: start: 20240910

REACTIONS (2)
  - Metastases to bone [Unknown]
  - Off label use [Unknown]

NARRATIVE: CASE EVENT DATE: 20241108
